FAERS Safety Report 17945420 (Version 7)
Quarter: 2021Q3

REPORT INFORMATION
  Report Type: Spontaneous
  Country: HU (occurrence: HU)
  Receive Date: 20200625
  Receipt Date: 20210731
  Transmission Date: 20211014
  Serious: Yes (Hospitalization, Other)
  Sender: FDA-Public Use
  Company Number: NVSC2020HU174591

PATIENT
  Age: 4 Year
  Sex: Female
  Weight: 20 kg

DRUGS (7)
  1. IBUPROFEN. [Suspect]
     Active Substance: IBUPROFEN
     Indication: PNEUMONIA MYCOPLASMAL
     Dosage: UNK, SUPPOSITORIES
     Route: 065
  2. CEFUROXIME. [Suspect]
     Active Substance: CEFUROXIME
     Indication: PNEUMONIA MYCOPLASMAL
     Dosage: UNK
     Route: 065
  3. CEFUROXIME. [Suspect]
     Active Substance: CEFUROXIME
     Indication: PNEUMONIA
  4. FLAMBORIN [Suspect]
     Active Substance: METAMIZOLE SODIUM
     Indication: PNEUMONIA
     Dosage: 1 DF, 3.8 DROPS SOLUTION
     Route: 065
  5. IBUPROFEN. [Suspect]
     Active Substance: IBUPROFEN
     Indication: PYREXIA
  6. FLAMBORIN [Suspect]
     Active Substance: METAMIZOLE SODIUM
     Indication: PYREXIA
  7. FLAMBORIN [Suspect]
     Active Substance: METAMIZOLE SODIUM
     Indication: PNEUMONIA MYCOPLASMAL

REACTIONS (2)
  - Stevens-Johnson syndrome [Recovered/Resolved]
  - Product use issue [Unknown]
